FAERS Safety Report 20923898 (Version 3)
Quarter: 2022Q4

REPORT INFORMATION
  Report Type: Other
  Country: CA (occurrence: None)
  Receive Date: 20220607
  Receipt Date: 20221104
  Transmission Date: 20230113
  Serious: Yes (Other)
  Sender: FDA-Public Use
  Company Number: CA-ROCHE-3103845

PATIENT
  Age: 42 Year
  Sex: Female

DRUGS (5)
  1. OCREVUS [Suspect]
     Active Substance: OCRELIZUMAB
     Indication: Relapsing-remitting multiple sclerosis
     Dosage: 300 MG AT DAY 0 AND 14, THEN 600 MG EVERY 6 MONTH
     Route: 042
     Dates: start: 20220511
  2. HUMALOG [Concomitant]
     Active Substance: INSULIN LISPRO
  3. AVAPRO [Concomitant]
     Active Substance: IRBESARTAN
  4. ATORVASTATIN [Concomitant]
     Active Substance: ATORVASTATIN
  5. METHIMAZOLE [Concomitant]
     Active Substance: METHIMAZOLE

REACTIONS (3)
  - Diabetes mellitus [Unknown]
  - Infusion related reaction [Not Recovered/Not Resolved]
  - Vision blurred [Not Recovered/Not Resolved]

NARRATIVE: CASE EVENT DATE: 20220526
